FAERS Safety Report 9067747 (Version 1)
Quarter: 2013Q1

REPORT INFORMATION
  Report Type: Spontaneous
  Country: CH (occurrence: CH)
  Receive Date: 20130206
  Receipt Date: 20130206
  Transmission Date: 20140127
  Serious: Yes (Hospitalization)
  Sender: FDA-Public Use
  Company Number: CH-PFIZER INC-2013029272

PATIENT
  Age: 75 Year
  Sex: Female
  Weight: 73.2 kg

DRUGS (5)
  1. SOLU-MEDROL [Suspect]
     Dosage: UNK
     Route: 051
     Dates: start: 20121220, end: 20121221
  2. GLUCOPHAGE [Concomitant]
     Dosage: 1 G, 2X/DAY
     Route: 048
     Dates: end: 20121220
  3. GLUCOPHAGE [Concomitant]
     Dosage: 1 G, 2X/DAY
     Route: 048
     Dates: start: 20121223
  4. LANTUS [Concomitant]
     Dosage: 11 IU, 2X/DAY
     Route: 058
     Dates: end: 20121220
  5. LANTUS [Concomitant]
     Dosage: 11 IU, 2X/DAY
     Route: 058

REACTIONS (3)
  - Hyperglycaemia [Recovering/Resolving]
  - Leukocytosis [Unknown]
  - Dyspnoea [Unknown]
